FAERS Safety Report 5401378-2 (Version None)
Quarter: 2007Q3

REPORT INFORMATION
  Report Type: 
  Country: None (occurrence: None)
  Receive Date: 20070731
  Receipt Date: 20070725
  Transmission Date: 20080115
  Serious: Yes (Life-Threatening)
  Sender: FDA-Public Use
  Company Number: B0480559A

PATIENT
  Age: 67 Year
  Sex: Female

DRUGS (1)
  1. ARIXTRA [Suspect]
     Dosage: 2.5MG PER DAY
     Route: 058
     Dates: start: 20070501, end: 20070510

REACTIONS (2)
  - HYPOVOLAEMIC SHOCK [None]
  - PERITONEAL HAEMORRHAGE [None]
